FAERS Safety Report 17438455 (Version 2)
Quarter: 2020Q1

REPORT INFORMATION
  Report Type: Spontaneous
  Country: HR (occurrence: HR)
  Receive Date: 20200220
  Receipt Date: 20200225
  Transmission Date: 20200409
  Serious: Yes (Other)
  Sender: FDA-Public Use
  Company Number: HR-US-PROVELL PHARMACEUTICALS LLC-E2B_90074985

PATIENT
  Age: 29 Year
  Sex: Female
  Weight: 83 kg

DRUGS (1)
  1. EUTHYROX [Suspect]
     Active Substance: LEVOTHYROXINE SODIUM
     Indication: HYPOTHYROIDISM
     Route: 048
     Dates: start: 20191205, end: 20200123

REACTIONS (8)
  - Hypopnoea [Recovering/Resolving]
  - Middle insomnia [Recovering/Resolving]
  - Angina pectoris [Recovering/Resolving]
  - Pruritus [Recovering/Resolving]
  - Hyperphagia [Recovering/Resolving]
  - Nausea [Recovering/Resolving]
  - Food aversion [Recovering/Resolving]
  - Vomiting [Recovering/Resolving]

NARRATIVE: CASE EVENT DATE: 20191220
